FAERS Safety Report 6638412-8 (Version None)
Quarter: 2010Q1

REPORT INFORMATION
  Report Type: 
  Country: None (occurrence: None)
  Receive Date: 20100317
  Receipt Date: 20100304
  Transmission Date: 20100710
  Serious: No
  Sender: FDA-Public Use
  Company Number: US-B.I. PHARMACEUTICALS,INC./RIDGEFIELD-2010-BP-00983BP

PATIENT
  Sex: Male

DRUGS (3)
  1. SPIRIVA [Suspect]
     Indication: CHRONIC OBSTRUCTIVE PULMONARY DISEASE
     Route: 055
     Dates: start: 20091001, end: 20100120
  2. PLAVIX [Concomitant]
  3. PROVENTIL [Concomitant]
     Route: 055
     Dates: start: 20091120

REACTIONS (10)
  - AGEUSIA [None]
  - DRY MOUTH [None]
  - DYSPHAGIA [None]
  - EYE PRURITUS [None]
  - GLOSSODYNIA [None]
  - LACRIMATION INCREASED [None]
  - OCULAR HYPERAEMIA [None]
  - ORAL DISCOMFORT [None]
  - PHARYNGEAL OEDEMA [None]
  - SWOLLEN TONGUE [None]
